FAERS Safety Report 9914052 (Version 2)
Quarter: 2014Q1

REPORT INFORMATION
  Report Type: Spontaneous
  Country: BR (occurrence: BR)
  Receive Date: 20140220
  Receipt Date: 20140225
  Transmission Date: 20141002
  Serious: Yes (Hospitalization, Other)
  Sender: FDA-Public Use
  Company Number: BR-GLAXOSMITHKLINE-B0970909A

PATIENT
  Age: 70 Year
  Sex: Female
  Weight: 85 kg

DRUGS (6)
  1. RHYTHMOL [Suspect]
     Indication: ATRIAL FIBRILLATION
     Dosage: .5TAB THREE TIMES PER DAY
     Route: 065
     Dates: start: 201401
  2. ISOPTIN [Suspect]
     Indication: PRODUCT USED FOR UNKNOWN INDICATION
     Dosage: 120MG PER DAY
     Route: 065
  3. PRADAXA [Concomitant]
     Indication: COAGULOPATHY
     Dosage: 1CAP TWICE PER DAY
  4. ATENOLOL [Concomitant]
  5. PRESSAT [Concomitant]
  6. NEXIUM [Concomitant]
     Indication: ABDOMINAL PAIN UPPER
     Dates: start: 2010

REACTIONS (15)
  - Knee operation [Unknown]
  - Investigation [Unknown]
  - Dysgeusia [Unknown]
  - Abdominal pain upper [Not Recovered/Not Resolved]
  - Drug ineffective [Unknown]
  - Nausea [Unknown]
  - Blood pressure increased [Unknown]
  - Malaise [Unknown]
  - Eructation [Unknown]
  - Liver disorder [Unknown]
  - Nervousness [Unknown]
  - Constipation [Unknown]
  - Wrong technique in drug usage process [Unknown]
  - Incorrect dose administered [Unknown]
  - Epigastric discomfort [Unknown]
